FAERS Safety Report 18247728 (Version 1)
Quarter: 2020Q3

REPORT INFORMATION
  Report Type: Spontaneous
  Country: GB (occurrence: GB)
  Receive Date: 20200909
  Receipt Date: 20200909
  Transmission Date: 20201103
  Serious: Yes (Other)
  Sender: FDA-Public Use
  Company Number: GB-GLAXOSMITHKLINE-GB2020176586

PATIENT
  Age: 31 Year
  Sex: Male
  Weight: 96 kg

DRUGS (1)
  1. ORLISTAT. [Suspect]
     Active Substance: ORLISTAT
     Indication: WEIGHT DECREASED
     Dosage: 100 MG
     Route: 048

REACTIONS (2)
  - Apathy [Unknown]
  - Depressed mood [Recovered/Resolved]
